FAERS Safety Report 15362250 (Version 1)
Quarter: 2018Q3

REPORT INFORMATION
  Report Type: Spontaneous
  Country: JP (occurrence: JP)
  Receive Date: 20180907
  Receipt Date: 20180907
  Transmission Date: 20181010
  Serious: Yes (Other)
  Sender: FDA-Public Use
  Company Number: JP-PFIZER INC-2018306596

PATIENT
  Sex: Male

DRUGS (11)
  1. SOLANAX [Suspect]
     Active Substance: ALPRAZOLAM
     Dosage: UNK, 2 DAYS ON, 3 DAYS OFF
     Dates: start: 201808
  2. SOLANAX [Suspect]
     Active Substance: ALPRAZOLAM
     Indication: ANXIETY
     Dosage: UNK UNK, 2X/DAY
     Route: 048
     Dates: start: 201807
  3. SOLANAX [Suspect]
     Active Substance: ALPRAZOLAM
     Dosage: 0.6 MG, DAILY (0.2MG IN THE MORNING AND 0.4MG IN THE NIGHT FOR 5DAYS)
     Route: 048
     Dates: start: 20180826
  4. BENZALIN [Concomitant]
     Active Substance: NITRAZEPAM
     Indication: INSOMNIA
     Dosage: UNK
     Route: 048
  5. SOLANAX [Suspect]
     Active Substance: ALPRAZOLAM
     Dosage: 0.4 MG, 1X/DAY
     Route: 048
  6. SOLANAX [Suspect]
     Active Substance: ALPRAZOLAM
     Dosage: 0.2 MG, 1X/DAY ( IN THE NOON)
     Route: 048
  7. MYSLEE [Concomitant]
     Active Substance: ZOLPIDEM TARTRATE
     Indication: INSOMNIA
     Dosage: UNK
     Route: 048
  8. SOLANAX [Suspect]
     Active Substance: ALPRAZOLAM
     Dosage: 0.4 MG, 2X/DAY
     Route: 048
  9. SOLANAX [Suspect]
     Active Substance: ALPRAZOLAM
     Dosage: 0.2 MG IN THE MORNING, 0.4 MG IN THE EVENING
     Route: 048
  10. SOLANAX [Suspect]
     Active Substance: ALPRAZOLAM
     Dosage: 0.4 MG, 1X/DAY ( IN THE NIGHT)
     Route: 048
  11. PREDONINE [Concomitant]
     Active Substance: PREDNISOLONE
     Dosage: UNK

REACTIONS (13)
  - Dizziness [Unknown]
  - Intentional product misuse [Unknown]
  - Somnolence [Unknown]
  - Tremor [Unknown]
  - Blood pressure decreased [Unknown]
  - Discomfort [Unknown]
  - Gait disturbance [Unknown]
  - Seizure [Unknown]
  - Malaise [Unknown]
  - Hyperhidrosis [Unknown]
  - Hot flush [Unknown]
  - Headache [Unknown]
  - Hypothermia [Unknown]

NARRATIVE: CASE EVENT DATE: 201807
